FAERS Safety Report 12465047 (Version 1)
Quarter: 2016Q2

REPORT INFORMATION
  Report Type: Spontaneous
  Country: JP (occurrence: JP)
  Receive Date: 20160614
  Receipt Date: 20160614
  Transmission Date: 20160815
  Serious: Yes (Death, Other)
  Sender: FDA-Public Use
  Company Number: PHJP1900JP002046

PATIENT
  Age: 79 Year
  Sex: Male

DRUGS (12)
  1. SANDIMMUNE [Suspect]
     Active Substance: CYCLOSPORINE
     Dosage: 200 MG, QD
     Route: 048
     Dates: start: 19920410, end: 19920410
  2. SANDIMMUNE [Suspect]
     Active Substance: CYCLOSPORINE
     Dosage: 300 MG, QD
     Route: 048
     Dates: start: 19920420, end: 19920503
  3. PREDONINE [Suspect]
     Active Substance: PREDNISOLONE\PREDNISOLONE ACETATE\PREDNISOLONE SODIUM SUCCINATE
     Indication: PROPHYLAXIS AGAINST TRANSPLANT REJECTION
     Dosage: 40 MG, QD
     Route: 048
     Dates: start: 19920313, end: 19920326
  4. SANDIMMUNE [Suspect]
     Active Substance: CYCLOSPORINE
     Dosage: 400 MG, QD
     Route: 048
     Dates: start: 19920411, end: 19920419
  5. PREDONINE [Suspect]
     Active Substance: PREDNISOLONE\PREDNISOLONE ACETATE\PREDNISOLONE SODIUM SUCCINATE
     Dosage: 40 MG, QD
     Route: 048
     Dates: start: 19920331, end: 19920401
  6. SANDIMMUNE [Suspect]
     Active Substance: CYCLOSPORINE
     Dosage: 250 MG, QD
     Route: 048
     Dates: start: 19920504, end: 19920507
  7. SANDIMMUNE [Suspect]
     Active Substance: CYCLOSPORINE
     Dosage: 200 MG, QD
     Route: 048
     Dates: start: 19920508, end: 19920515
  8. PREDONINE [Suspect]
     Active Substance: PREDNISOLONE\PREDNISOLONE ACETATE\PREDNISOLONE SODIUM SUCCINATE
     Dosage: 60 MG, QD
     Route: 048
     Dates: start: 19920329, end: 19920330
  9. SANDIMMUNE [Suspect]
     Active Substance: CYCLOSPORINE
     Indication: CORNEAL TRANSPLANT
     Dosage: 100 MG, QD
     Route: 048
     Dates: start: 19920409, end: 19920409
  10. PREDONINE [Suspect]
     Active Substance: PREDNISOLONE\PREDNISOLONE ACETATE\PREDNISOLONE SODIUM SUCCINATE
     Dosage: 80 MG, QD
     Route: 048
     Dates: start: 19920327, end: 19920328
  11. PREDONINE [Suspect]
     Active Substance: PREDNISOLONE\PREDNISOLONE ACETATE\PREDNISOLONE SODIUM SUCCINATE
     Dosage: 30 MG, QD
     Route: 048
     Dates: start: 19920402, end: 19920404
  12. PREDONINE [Suspect]
     Active Substance: PREDNISOLONE\PREDNISOLONE ACETATE\PREDNISOLONE SODIUM SUCCINATE
     Dosage: 20 MG, QD
     Route: 048
     Dates: start: 19920405, end: 19920409

REACTIONS (1)
  - Pneumonia [Fatal]
